FAERS Safety Report 5642915-2 (Version None)
Quarter: 2008Q1

REPORT INFORMATION
  Report Type: 
  Country: None (occurrence: None)
  Receive Date: 20080228
  Receipt Date: 20080220
  Transmission Date: 20080703
  Serious: Yes (Hospitalization, Other)
  Sender: FDA-Public Use
  Company Number: US-ROCHE-548666

PATIENT
  Sex: Female

DRUGS (2)
  1. PEGASYS [Suspect]
     Route: 065
     Dates: start: 20070918, end: 20071218
  2. RIBAVIRIN [Suspect]
     Route: 065
     Dates: start: 20070918, end: 20071218

REACTIONS (5)
  - CONVULSION [None]
  - INFLUENZA LIKE ILLNESS [None]
  - PYREXIA [None]
  - RASH [None]
  - SUICIDAL IDEATION [None]
